FAERS Safety Report 4854978-2 (Version None)
Quarter: 2005Q4

REPORT INFORMATION
  Report Type: 
  Country: None (occurrence: None)
  Receive Date: 20051214
  Receipt Date: 20051124
  Transmission Date: 20060501
  Serious: Yes (Hospitalization)
  Sender: FDA-Public Use
  Company Number: CH200511002832

PATIENT
  Age: 90 Year
  Sex: Female

DRUGS (3)
  1. ZYPREXA [Suspect]
     Indication: PSYCHOTIC DISORDER
     Dosage: 2.5 MG, DAILY (1/D), ORAL
     Route: 048
     Dates: start: 20051108
  2. NORVASC [Concomitant]
  3. BLOPRESS (CANDESARTAN CILEXETIL) [Concomitant]

REACTIONS (2)
  - FALL [None]
  - FEMORAL NECK FRACTURE [None]
